FAERS Safety Report 5070148-X (Version None)
Quarter: 2006Q3

REPORT INFORMATION
  Report Type: 
  Country: None (occurrence: None)
  Receive Date: 20060802
  Receipt Date: 20060802
  Transmission Date: 20061208
  Serious: Yes (Life-Threatening, Hospitalization)
  Sender: FDA-Public Use
  Company Number: None

PATIENT
  Age: 61 Year
  Sex: Female
  Weight: 104 kg

DRUGS (13)
  1. QUINAPRIL [Suspect]
     Indication: HYPERTENSION
     Dosage: 5MG DAILY PO
     Route: 048
     Dates: start: 20050903, end: 20050911
  2. ACETAMINOPHEN [Concomitant]
  3. DIPHENHYDRAMINE HCL [Concomitant]
  4. PROMETHAZINE [Concomitant]
  5. FAMOTADINE [Concomitant]
  6. PANTOPRAZOLE SODIUM [Concomitant]
  7. CLONIDINE [Concomitant]
  8. ENOXAPARIN SODIUM [Concomitant]
  9. ESTROGEN -CONJUGATED- [Concomitant]
  10. FERROUS SULFATE TAB [Concomitant]
  11. FLUTICASONE -NASAL [Concomitant]
  12. MULTI-VITAMIN [Concomitant]
  13. IBUPROFEN [Concomitant]

REACTIONS (2)
  - ANGIONEUROTIC OEDEMA [None]
  - SWELLING FACE [None]
